FAERS Safety Report 7401158-2 (Version None)
Quarter: 2011Q2

REPORT INFORMATION
  Report Type: 
  Country: None (occurrence: None)
  Receive Date: 20110407
  Receipt Date: 20110331
  Transmission Date: 20111010
  Serious: Yes (Death, Hospitalization)
  Sender: FDA-Public Use
  Company Number: US-GILEAD-2010-0034626

PATIENT
  Sex: Male

DRUGS (1)
  1. LETAIRIS [Suspect]
     Indication: PRODUCT USED FOR UNKNOWN INDICATION
     Route: 048
     Dates: start: 20090715

REACTIONS (6)
  - CARDIAC DISORDER [None]
  - PNEUMONIA KLEBSIELLA [None]
  - CARDIAC FAILURE CONGESTIVE [None]
  - DEATH [None]
  - RENAL FAILURE ACUTE [None]
  - ILEUS [None]
